FAERS Safety Report 22044596 (Version 1)
Quarter: 2023Q1

REPORT INFORMATION
  Report Type: Spontaneous
  Country: US (occurrence: None)
  Receive Date: 20230227
  Receipt Date: 20230227
  Transmission Date: 20230417
  Serious: Yes (Other)
  Sender: FDA-Public Use
  Company Number: None

PATIENT
  Age: 78 Year
  Sex: 0
  Weight: 54 kg

DRUGS (1)
  1. ARTIFICIAL EYE [Suspect]
     Active Substance: MINERAL OIL\PETROLATUM
     Indication: Dry eye
     Dates: start: 20230215, end: 20230217

REACTIONS (4)
  - Pain [None]
  - Emotional distress [None]
  - Recalled product administered [None]
  - Eye infection [None]

NARRATIVE: CASE EVENT DATE: 20230218
